FAERS Safety Report 13518792 (Version 1)
Quarter: 2017Q2

REPORT INFORMATION
  Report Type: Spontaneous
  Country: US (occurrence: US)
  Receive Date: 20170505
  Receipt Date: 20170505
  Transmission Date: 20170830
  Serious: Yes (Other)
  Sender: FDA-Public Use
  Company Number: US-BAYER-2017-082375

PATIENT
  Age: 35 Year
  Sex: Female

DRUGS (1)
  1. MIRENA [Suspect]
     Active Substance: LEVONORGESTREL
     Indication: CONTRACEPTION
     Dosage: 20 MCG/24HR, CONT
     Route: 015
     Dates: start: 20160414, end: 20170301

REACTIONS (5)
  - Coagulopathy [None]
  - Abdominal pain lower [None]
  - Device deployment issue [None]
  - Device dislocation [None]
  - Hypertension [None]

NARRATIVE: CASE EVENT DATE: 20170301
